FAERS Safety Report 6656828-0 (Version None)
Quarter: 2010Q1

REPORT INFORMATION
  Report Type: 
  Country: None (occurrence: None)
  Receive Date: 20100325
  Receipt Date: 20100317
  Transmission Date: 20100710
  Serious: Yes (Other)
  Sender: FDA-Public Use
  Company Number: TPA2010A01123

PATIENT
  Age: 44 Year
  Sex: Male
  Weight: 107 kg

DRUGS (3)
  1. ULORIC [Suspect]
     Indication: GOUT
     Dosage: 40 MG, 1 IN 1 D, PER ORAL
     Route: 048
     Dates: start: 20100210, end: 20100310
  2. LISNOPRIL (LISINOPRIL) [Concomitant]
  3. COREG [Concomitant]

REACTIONS (2)
  - PERSONALITY CHANGE [None]
  - VIOLENCE-RELATED SYMPTOM [None]
